FAERS Safety Report 8904709 (Version 1)
Quarter: 2012Q4

REPORT INFORMATION
  Report Type: 
  Country: US (occurrence: US)
  Receive Date: 20121113
  Receipt Date: 20121113
  Transmission Date: 20130627
  Serious: No
  Sender: FDA-Public Use
  Company Number: US-GLAXOSMITHKLINE-A0975029A

PATIENT
  Age: 55 Year
  Sex: Female
  Weight: 95.5 kg

DRUGS (4)
  1. COREG [Suspect]
     Indication: HYPERTENSION
     Dosage: 12.5MG Twice per day
  2. LISINOPRIL [Suspect]
     Indication: HYPERTENSION
     Dosage: 10MG Per day
  3. METFORMIN [Concomitant]
     Indication: DIABETES MELLITUS
  4. PLAVIX [Concomitant]
     Indication: THROMBOSIS PROPHYLAXIS

REACTIONS (1)
  - Hypertension [Unknown]
